FAERS Safety Report 7447528-8 (Version None)
Quarter: 2011Q2

REPORT INFORMATION
  Report Type: 
  Country: None (occurrence: None)
  Receive Date: 20110429
  Receipt Date: 20110126
  Transmission Date: 20111010
  Serious: No
  Sender: FDA-Public Use
  Company Number: US-ASTRAZENECA-2011SE04875

PATIENT
  Age: 88 Year
  Sex: Female

DRUGS (1)
  1. NEXIUM [Suspect]

REACTIONS (2)
  - LARYNGITIS [None]
  - APHONIA [None]
